FAERS Safety Report 8102074-3 (Version None)
Quarter: 2012Q1

REPORT INFORMATION
  Report Type: 
  Country: None (occurrence: None)
  Receive Date: 20120131
  Receipt Date: 20120127
  Transmission Date: 20120608
  Serious: Yes (Hospitalization, Disabling, Other)
  Sender: FDA-Public Use
  Company Number: US-MERCK-1106USA03848

PATIENT
  Age: 63 Year
  Sex: Female

DRUGS (2)
  1. FOSAMAX [Suspect]
     Route: 048
     Dates: end: 20100801
  2. FOSAMAX [Suspect]
     Indication: BONE LOSS
     Route: 048
     Dates: start: 20040101, end: 20100101

REACTIONS (36)
  - JOINT DISLOCATION [None]
  - ACUTE SINUSITIS [None]
  - PAIN IN EXTREMITY [None]
  - APPENDIX DISORDER [None]
  - TYPE 2 DIABETES MELLITUS [None]
  - THYROID NEOPLASM [None]
  - ANAEMIA POSTOPERATIVE [None]
  - UTERINE DISORDER [None]
  - CHEST PAIN [None]
  - BLADDER DISORDER [None]
  - OSTEOPOROSIS [None]
  - ARTHROPATHY [None]
  - HYPERGLYCAEMIA [None]
  - GOITRE [None]
  - OEDEMA PERIPHERAL [None]
  - TONSILLAR DISORDER [None]
  - POST PROCEDURAL CONSTIPATION [None]
  - FALL [None]
  - FOOT DEFORMITY [None]
  - DEVICE FAILURE [None]
  - ASTHMA [None]
  - ROTATOR CUFF SYNDROME [None]
  - MYALGIA [None]
  - INCORRECT DOSE ADMINISTERED [None]
  - HYPERKERATOSIS [None]
  - FEMUR FRACTURE [None]
  - UPPER LIMB FRACTURE [None]
  - SEASONAL ALLERGY [None]
  - SLEEP DISORDER [None]
  - BRONCHIAL HYPERREACTIVITY [None]
  - POLYARTHRITIS [None]
  - ESSENTIAL HYPERTENSION [None]
  - ADENOIDECTOMY [None]
  - LIGAMENT INJURY [None]
  - ADVERSE EVENT [None]
  - ARTHRALGIA [None]
